FAERS Safety Report 16066288 (Version 1)
Quarter: 2019Q2

REPORT INFORMATION
  Report Type: Spontaneous
  Country: US (occurrence: US)
  Receive Date: 20190312
  Receipt Date: 20190312
  Transmission Date: 20190711
  Serious: Yes (Other)
  Sender: FDA-Public Use
  Company Number: None

PATIENT
  Age: 3 Year
  Sex: Male
  Weight: 11.25 kg

DRUGS (1)
  1. MULTI-VITAMIN WITH FLUORIDE [Suspect]
     Active Substance: .ALPHA.-TOCOPHEROL ACETATE\.ALPHA.-TOCOPHEROL ACETATE, DL-\ASCORBIC ACID\CHOLECALCIFEROL\CYANOCOBALAMIN\FLUORIDE ION\FOLIC ACID\NIACIN\NIACINAMIDE\PYRIDOXINE\PYRIDOXINE HYDROCHLORIDE\RIBOFLAVIN\SODIUM FLUORIDE\THIAMINE\THIAMINE HYDROCHLORIDE\VITAMIN A\VITAMIN A ACETATE\VITAMIN D
     Indication: VITAMIN SUPPLEMENTATION

REACTIONS (3)
  - Rash erythematous [None]
  - Flushing [None]
  - Adverse drug reaction [None]
